FAERS Safety Report 4806388-1 (Version None)
Quarter: 2005Q4

REPORT INFORMATION
  Report Type: 
  Country: None (occurrence: None)
  Receive Date: 20051021
  Receipt Date: 20050808
  Transmission Date: 20060501
  Serious: Yes (Death, Life-Threatening, Hospitalization, Disabling)
  Sender: FDA-Public Use
  Company Number: FR-BRISTOL-MYERS SQUIBB COMPANY-13071600

PATIENT
  Age: 54 Year
  Sex: Male

DRUGS (3)
  1. CETUXIMAB [Suspect]
     Indication: SQUAMOUS CELL CARCINOMA
     Dosage: ON 05-JUL-05 PT DISCONTINUED FROM STUDY DUE TO PD
     Route: 041
     Dates: start: 20050614, end: 20050624
  2. CARBOPLATIN [Suspect]
     Indication: SQUAMOUS CELL CARCINOMA
     Dosage: ON 05-JUL-05, PT WAS DISCONTINUED FROM STUDY DUE TO PD
     Route: 042
     Dates: start: 20050614, end: 20050614
  3. FLUOROURACIL [Suspect]
     Indication: SQUAMOUS CELL CARCINOMA
     Dosage: ON 05-JUL-05, PT WAS DISCONTINUED FROM STUDY DUE TO PD
     Route: 042
     Dates: start: 20050614, end: 20050614

REACTIONS (2)
  - FEBRILE BONE MARROW APLASIA [None]
  - MALIGNANT NEOPLASM PROGRESSION [None]
